FAERS Safety Report 16646844 (Version 1)
Quarter: 2019Q3

REPORT INFORMATION
  Report Type: Spontaneous
  Country: US (occurrence: US)
  Receive Date: 20190730
  Receipt Date: 20190730
  Transmission Date: 20191004
  Serious: No
  Sender: FDA-Public Use
  Company Number: US-NVP-000016

PATIENT
  Age: 60 Year

DRUGS (1)
  1. THIOTHIXENE. [Suspect]
     Active Substance: THIOTHIXENE
     Indication: PRODUCT USED FOR UNKNOWN INDICATION
     Route: 065

REACTIONS (5)
  - Dehydration [Unknown]
  - Myalgia [Unknown]
  - Gait disturbance [Unknown]
  - Fatigue [Unknown]
  - Feeling abnormal [Unknown]
